FAERS Safety Report 13818399 (Version 1)
Quarter: 2017Q3

REPORT INFORMATION
  Report Type: Spontaneous
  Country: US (occurrence: US)
  Receive Date: 20170731
  Receipt Date: 20170731
  Transmission Date: 20171127
  Serious: No
  Sender: FDA-Public Use
  Company Number: US-ROCHE-597718

PATIENT
  Age: 51 Year
  Sex: Female
  Weight: 53.4 kg

DRUGS (1)
  1. BONIVA [Suspect]
     Active Substance: IBANDRONATE SODIUM
     Indication: OSTEOPENIA
     Dosage: STRENGTH: 3 MG/3 ML
     Route: 042
     Dates: start: 20080804, end: 20080804

REACTIONS (6)
  - Pyrexia [Unknown]
  - Back pain [Unknown]
  - Chills [Unknown]
  - Myalgia [Unknown]
  - Hyperhidrosis [Unknown]
  - Arthralgia [Unknown]

NARRATIVE: CASE EVENT DATE: 200810
